FAERS Safety Report 11090160 (Version 3)
Quarter: 2016Q3

REPORT INFORMATION
  Report Type: Spontaneous
  Country: US (occurrence: US)
  Receive Date: 20150505
  Receipt Date: 20160826
  Transmission Date: 20161109
  Serious: Yes (Life-Threatening, Hospitalization)
  Sender: FDA-Public Use
  Company Number: US-BAYER-2015-189234

PATIENT
  Age: 26 Year
  Sex: Female
  Weight: 72.56 kg

DRUGS (2)
  1. MIRENA [Suspect]
     Active Substance: LEVONORGESTREL
     Indication: CONTRACEPTION
     Dosage: 20 MCG/24HR, CONT
     Route: 015
     Dates: start: 20110103, end: 20120918
  2. PRENATAL VITAMINS [Concomitant]
     Active Substance: VITAMINS
     Indication: NAUSEA
     Dosage: UNK
     Dates: start: 2010, end: 2013

REACTIONS (13)
  - General physical health deterioration [Not Recovered/Not Resolved]
  - Alopecia [None]
  - Anhedonia [None]
  - Pharmacophobia [None]
  - Device issue [Not Recovered/Not Resolved]
  - Menorrhagia [None]
  - Fear [None]
  - Injury [Not Recovered/Not Resolved]
  - Emotional distress [None]
  - Abdominal pain [Not Recovered/Not Resolved]
  - Uterine perforation [Not Recovered/Not Resolved]
  - Abdominal pain lower [Not Recovered/Not Resolved]
  - Anxiety [None]

NARRATIVE: CASE EVENT DATE: 201101
